FAERS Safety Report 25697428 (Version 1)
Quarter: 2025Q3

REPORT INFORMATION
  Report Type: Spontaneous
  Country: US (occurrence: US)
  Receive Date: 20250818
  Receipt Date: 20250818
  Transmission Date: 20251020
  Serious: No
  Sender: BIOMARIN
  Company Number: US-BIOMARINAP-US-2025-168121

PATIENT
  Sex: Female

DRUGS (1)
  1. PALYNZIQ [Suspect]
     Active Substance: PEGVALIASE-PQPZ
     Indication: Product used for unknown indication

REACTIONS (7)
  - Menopause [Unknown]
  - Blood pressure increased [Unknown]
  - Hypoaesthesia [Unknown]
  - Panic attack [Unknown]
  - Poor quality sleep [Unknown]
  - Fatigue [Unknown]
  - Nausea [Unknown]
